FAERS Safety Report 19240776 (Version 1)
Quarter: 2021Q2

REPORT INFORMATION
  Report Type: Spontaneous
  Country: US (occurrence: US)
  Receive Date: 20210511
  Receipt Date: 20210511
  Transmission Date: 20210717
  Serious: Yes (Life-Threatening, Hospitalization)
  Sender: FDA-Public Use
  Company Number: US-JNJFOC-20210461441

PATIENT
  Age: 53 Year
  Sex: Male

DRUGS (2)
  1. TYLENOL [Concomitant]
     Active Substance: ACETAMINOPHEN
     Indication: PYREXIA
     Route: 065
  2. LIDOCAINE HYDROCHLORIDE. [Suspect]
     Active Substance: LIDOCAINE HYDROCHLORIDE
     Indication: ARTHRALGIA
     Route: 061

REACTIONS (7)
  - Atrioventricular block complete [Recovered/Resolved]
  - Blood creatinine increased [Recovered/Resolved]
  - Blood sodium decreased [Recovered/Resolved]
  - Blood potassium increased [Recovered/Resolved]
  - Methaemoglobinaemia [Recovered/Resolved]
  - Respiratory failure [Recovered/Resolved]
  - Transaminases increased [Recovered/Resolved]
